FAERS Safety Report 8507456-3 (Version None)
Quarter: 2012Q3

REPORT INFORMATION
  Report Type: 
  Country: None (occurrence: None)
  Receive Date: 20120712
  Receipt Date: 20120703
  Transmission Date: 20120928
  Serious: Yes (Hospitalization)
  Sender: FDA-Public Use
  Company Number: US-BAYER-2012-014277

PATIENT
  Age: 27 Year
  Sex: Female

DRUGS (4)
  1. ZOFRAN [Concomitant]
     Dosage: 4 MG, UNK
     Route: 048
     Dates: start: 20101109
  2. YAZ [Suspect]
     Dosage: UNK
     Dates: start: 20100301, end: 20110214
  3. DARVOCET-N 50 [Concomitant]
     Dosage: UNK
     Route: 048
     Dates: start: 20101109
  4. PROAIR HFA [Concomitant]
     Dosage: UNK, AS NEEDED

REACTIONS (3)
  - THROMBOSIS [None]
  - DEEP VEIN THROMBOSIS [None]
  - PULMONARY EMBOLISM [None]
